FAERS Safety Report 7225810-7 (Version None)
Quarter: 2011Q1

REPORT INFORMATION
  Report Type: 
  Country: None (occurrence: None)
  Receive Date: 20110113
  Receipt Date: 20110104
  Transmission Date: 20110831
  Serious: Yes (Death, Hospitalization, Other)
  Sender: FDA-Public Use
  Company Number: US-CELGENEUS-163-21880-11010200

PATIENT
  Sex: Male
  Weight: 106.69 kg

DRUGS (9)
  1. FE [Concomitant]
     Route: 048
  2. REVLIMID [Suspect]
     Indication: NON-HODGKIN'S LYMPHOMA
     Route: 048
     Dates: start: 20090807, end: 20101208
  3. ZOCOR [Concomitant]
     Route: 065
  4. TAMSULOSIN [Concomitant]
     Route: 065
  5. DEXAMETHASONE [Suspect]
     Indication: NON-HODGKIN'S LYMPHOMA
     Route: 048
     Dates: start: 20090809, end: 20101208
  6. ZESTRIL [Concomitant]
     Route: 065
  7. ASPIRIN [Concomitant]
     Route: 065
  8. MAXIDONE [Concomitant]
     Route: 065
  9. HYZAAR [Concomitant]
     Route: 065

REACTIONS (8)
  - THROMBOCYTOPENIA [None]
  - PLEURAL EFFUSION [None]
  - HAEMOGLOBIN DECREASED [None]
  - SEPTIC SHOCK [None]
  - DEATH [None]
  - ACUTE MYOCARDIAL INFARCTION [None]
  - OCCULT BLOOD POSITIVE [None]
  - RESPIRATORY DISTRESS [None]
